FAERS Safety Report 4925178-2 (Version None)
Quarter: 2006Q1

REPORT INFORMATION
  Report Type: 
  Country: None (occurrence: None)
  Receive Date: 20060228
  Receipt Date: 20060105
  Transmission Date: 20060701
  Serious: No
  Sender: FDA-Public Use
  Company Number: US-GLAXOSMITHKLINE-A0587918A

PATIENT
  Age: 72 Year
  Sex: Male

DRUGS (5)
  1. AVODART [Suspect]
     Indication: BENIGN PROSTATIC HYPERPLASIA
     Dosage: .5MG PER DAY
     Route: 048
     Dates: start: 20060101
  2. COZAAR [Concomitant]
  3. DIGOXIN [Concomitant]
  4. ZOCOR [Concomitant]
  5. METHOTREXATE [Concomitant]

REACTIONS (1)
  - URINE FLOW DECREASED [None]
